FAERS Safety Report 13716434 (Version 1)
Quarter: 2017Q3

REPORT INFORMATION
  Report Type: Spontaneous
  Country: US (occurrence: US)
  Receive Date: 20170703
  Receipt Date: 20170703
  Transmission Date: 20171127
  Serious: No
  Sender: FDA-Public Use
  Company Number: None

PATIENT
  Age: 55 Year
  Sex: Male
  Weight: 71 kg

DRUGS (1)
  1. CEFTRIAXONE. [Suspect]
     Active Substance: CEFTRIAXONE
     Indication: INFECTION
     Route: 042
     Dates: start: 20170123, end: 20170306

REACTIONS (3)
  - Acute kidney injury [None]
  - Tubulointerstitial nephritis [None]
  - Haemodialysis [None]

NARRATIVE: CASE EVENT DATE: 20170311
